FAERS Safety Report 6848908-1 (Version None)
Quarter: 2010Q3

REPORT INFORMATION
  Report Type: 
  Country: None (occurrence: None)
  Receive Date: 20100716
  Receipt Date: 20070920
  Transmission Date: 20110219
  Serious: No
  Sender: FDA-Public Use
  Company Number: US-PFIZER INC-2007080697

PATIENT
  Sex: Male
  Weight: 97.272 kg

DRUGS (3)
  1. CHANTIX [Suspect]
     Indication: SMOKING CESSATION THERAPY
     Route: 048
     Dates: start: 20070905
  2. PREDNISONE [Concomitant]
     Dates: end: 20070915
  3. ZYRTEC [Concomitant]
     Dates: end: 20070915

REACTIONS (3)
  - ARTHRITIS [None]
  - HYPOAESTHESIA [None]
  - NAUSEA [None]
